FAERS Safety Report 4395712-2 (Version None)
Quarter: 2004Q3

REPORT INFORMATION
  Report Type: 
  Country: None (occurrence: None)
  Receive Date: 20040713
  Receipt Date: 20040407
  Transmission Date: 20050211
  Serious: Yes (Life-Threatening, Hospitalization)
  Sender: FDA-Public Use
  Company Number: GB-BRISTOL-MYERS SQUIBB COMPANY-12553558

PATIENT
  Age: 68 Year
  Sex: Female
  Weight: 55 kg

DRUGS (5)
  1. CARBOPLATIN [Suspect]
     Indication: SMALL CELL LUNG CANCER STAGE UNSPECIFIED
     Route: 042
     Dates: start: 20040309, end: 20040309
  2. QUININE [Concomitant]
     Indication: MUSCLE CRAMP
     Route: 048
     Dates: start: 20020101
  3. DIHYDROCODEINE [Concomitant]
     Indication: PAIN
     Route: 048
     Dates: start: 20040101
  4. DEXAMETHASONE [Concomitant]
     Indication: PROPHYLAXIS OF NAUSEA AND VOMITING
     Route: 048
     Dates: start: 20040309, end: 20040313
  5. DOMPERIDONE [Concomitant]
     Indication: PROPHYLAXIS OF NAUSEA AND VOMITING
     Route: 048
     Dates: start: 20040309, end: 20040314

REACTIONS (2)
  - DROP ATTACKS [None]
  - MYOCARDIAL INFARCTION [None]
